FAERS Safety Report 12300456 (Version 1)
Quarter: 2016Q2

REPORT INFORMATION
  Report Type: Spontaneous
  Country: US (occurrence: US)
  Receive Date: 20160425
  Receipt Date: 20160425
  Transmission Date: 20160815
  Serious: Yes (Other)
  Sender: FDA-Public Use
  Company Number: US-PFIZER INC-2016227059

PATIENT
  Sex: Female

DRUGS (1)
  1. CHANTIX [Suspect]
     Active Substance: VARENICLINE TARTRATE
     Dosage: UNK

REACTIONS (10)
  - Constipation [Unknown]
  - Mood swings [Unknown]
  - Paranoia [Unknown]
  - Confusional state [Unknown]
  - Seizure [Unknown]
  - Suicidal ideation [Unknown]
  - Hallucination [Unknown]
  - Aggression [Unknown]
  - Amnesia [Unknown]
  - Skin reaction [Unknown]
